FAERS Safety Report 16252408 (Version 2)
Quarter: 2019Q2

REPORT INFORMATION
  Report Type: Spontaneous
  Country: IE (occurrence: IE)
  Receive Date: 20190429
  Receipt Date: 20190528
  Transmission Date: 20190711
  Serious: Yes (Other)
  Sender: FDA-Public Use
  Company Number: IE-BRISTOL-MYERS SQUIBB COMPANY-BMS-2019-039126

PATIENT
  Sex: Male

DRUGS (1)
  1. NIVOLUMAB [Suspect]
     Active Substance: NIVOLUMAB
     Indication: NON-SMALL CELL LUNG CANCER
     Dosage: UNAVAILABLE
     Route: 065

REACTIONS (3)
  - Hepatitis [Recovered/Resolved]
  - Pancreatic mass [Recovered/Resolved]
  - Autoimmune pancreatitis [Recovered/Resolved]
